FAERS Safety Report 18458589 (Version 1)
Quarter: 2020Q4

REPORT INFORMATION
  Report Type: Spontaneous
  Country: JP (occurrence: JP)
  Receive Date: 20201103
  Receipt Date: 20201103
  Transmission Date: 20210114
  Serious: Yes (Other)
  Sender: FDA-Public Use
  Company Number: JP-PFIZER INC-2020420583

PATIENT

DRUGS (2)
  1. METHOTREXATE. [Suspect]
     Active Substance: METHOTREXATE
     Dosage: BELOW 100ML/M2/HR
  2. METHOTREXATE. [Suspect]
     Active Substance: METHOTREXATE
     Dosage: 3G/M2

REACTIONS (1)
  - Oedema [Unknown]
